FAERS Safety Report 9345669 (Version 1)
Quarter: 2013Q2

REPORT INFORMATION
  Report Type: Report from Study
  Country: US (occurrence: US)
  Receive Date: 20130613
  Receipt Date: 20130613
  Transmission Date: 20140414
  Serious: No
  Sender: FDA-Public Use
  Company Number: PHEH2013US012594

PATIENT
  Age: 91 Year
  Sex: Male

DRUGS (2)
  1. TASIGNA [Suspect]
     Indication: CHRONIC MYELOID LEUKAEMIA
     Dosage: 300 MG, BID
     Route: 048
     Dates: start: 20130305
  2. TASIGNA [Suspect]
     Dosage: 450 MG, DAILY
     Route: 048

REACTIONS (1)
  - Nausea [Recovering/Resolving]
